FAERS Safety Report 7973199-8 (Version None)
Quarter: 2011Q4

REPORT INFORMATION
  Report Type: 
  Country: None (occurrence: None)
  Receive Date: 20111213
  Receipt Date: 20111130
  Transmission Date: 20120403
  Serious: Yes (Other)
  Sender: FDA-Public Use
  Company Number: PHHY2010CA79489

PATIENT
  Sex: Male

DRUGS (4)
  1. AFINITOR [Suspect]
     Dosage: 5 MG, DAILY
     Route: 048
     Dates: end: 20110124
  2. AFINITOR [Suspect]
     Dosage: 10 MG, DAILY
     Route: 048
     Dates: end: 20110613
  3. SANDOSTATIN LAR [Suspect]
     Indication: PANCREATIC NEUROENDOCRINE TUMOUR
     Dosage: 30 MG, EVERY 4 WEEKS
     Route: 030
     Dates: start: 20090420
  4. AFINITOR [Suspect]
     Indication: PANCREATIC NEUROENDOCRINE TUMOUR
     Dosage: 10 MG, DAILY
     Route: 048
     Dates: start: 20101109

REACTIONS (13)
  - BLOOD GLUCOSE INCREASED [None]
  - MUCOSAL INFLAMMATION [None]
  - NEOPLASM MALIGNANT [None]
  - HAEMOGLOBIN DECREASED [None]
  - FATIGUE [None]
  - ANAEMIA [None]
  - PYREXIA [None]
  - DRUG INEFFECTIVE [None]
  - NEOPLASM PROGRESSION [None]
  - PNEUMONIA [None]
  - TONGUE ULCERATION [None]
  - ORAL PAIN [None]
  - MOUTH ULCERATION [None]
